FAERS Safety Report 9470680 (Version 1)
Quarter: 2013Q3

REPORT INFORMATION
  Report Type: Report from Study
  Country: DE (occurrence: DE)
  Receive Date: 20130822
  Receipt Date: 20130822
  Transmission Date: 20140515
  Serious: Yes (Other)
  Sender: FDA-Public Use
  Company Number: DE-CELGENEUS-062-21880-13081658

PATIENT
  Age: 73 Year
  Sex: Male
  Weight: 66 kg

DRUGS (9)
  1. REVLIMID [Suspect]
     Indication: PLASMA CELL MYELOMA
     Dosage: 25 MILLIGRAM
     Route: 048
     Dates: start: 20091128, end: 20091218
  2. REVLIMID [Suspect]
     Dosage: 25 MILLIGRAM
     Route: 048
     Dates: start: 20100707, end: 20100727
  3. DEXAMETHASONE [Suspect]
     Indication: PLASMA CELL MYELOMA
     Route: 048
     Dates: start: 20091128, end: 20091219
  4. DEXAMETHASONE [Suspect]
     Route: 048
     Dates: start: 20100707, end: 20100728
  5. DEXAMETHASONE [Suspect]
     Dosage: 20 MILLIGRAM
     Route: 041
     Dates: start: 20130517, end: 20130618
  6. ZOMETA [Concomitant]
     Indication: PRODUCT USED FOR UNKNOWN INDICATION
     Route: 065
     Dates: end: 20130614
  7. COTRIM FORTE [Concomitant]
     Indication: PROPHYLAXIS
     Route: 048
     Dates: start: 20130517, end: 20130622
  8. AMPHOMORONAL [Concomitant]
     Indication: PROPHYLAXIS
     Dosage: 20 MILLILITER
     Route: 048
     Dates: start: 20130517, end: 20130621
  9. CYCLOPHOSPHAMIDE [Concomitant]
     Indication: PLASMA CELL MYELOMA
     Route: 065
     Dates: start: 20100824, end: 20100824

REACTIONS (1)
  - Refractory cytopenia with multilineage dysplasia [Not Recovered/Not Resolved]
